FAERS Safety Report 9389097 (Version 1)
Quarter: 2013Q3

REPORT INFORMATION
  Report Type: Spontaneous
  Country: US (occurrence: US)
  Receive Date: 20130708
  Receipt Date: 20130708
  Transmission Date: 20140515
  Serious: No
  Sender: FDA-Public Use
  Company Number: US-AMGEN-USASP2013024925

PATIENT
  Age: 27 Year
  Sex: Female
  Weight: 163.27 kg

DRUGS (1)
  1. ENBREL [Suspect]
     Indication: PSORIASIS
     Dosage: 50 MG, 2 TIMES/WK
     Route: 058
     Dates: start: 20130313

REACTIONS (5)
  - Headache [Recovered/Resolved]
  - Migraine [Recovered/Resolved]
  - Injection site pain [Recovered/Resolved]
  - Injection site swelling [Not Recovered/Not Resolved]
  - Injection site haemorrhage [Not Recovered/Not Resolved]
